FAERS Safety Report 4407215-7 (Version None)
Quarter: 2004Q3

REPORT INFORMATION
  Report Type: 
  Country: None (occurrence: None)
  Receive Date: 20040723
  Receipt Date: 20040723
  Transmission Date: 20050211
  Serious: Yes (Life-Threatening, Hospitalization)
  Sender: FDA-Public Use
  Company Number: None

PATIENT
  Age: 43 Year
  Sex: Female
  Weight: 43.0917 kg

DRUGS (2)
  1. CIPROFLOXACIN [Suspect]
     Indication: SHIGELLA INFECTION
     Dosage: 2 TIMES DAILY ORAL
     Route: 048
     Dates: start: 20031024, end: 20031025
  2. LEVAQUIN [Suspect]
     Indication: SHIGELLA INFECTION
     Dosage: 2-3 DOSES DON^T KNO INTRAVENOUS
     Route: 042
     Dates: start: 20031026, end: 20031026

REACTIONS (8)
  - ANXIETY [None]
  - ASTHENIA [None]
  - DYSPNOEA [None]
  - HEART RATE INCREASED [None]
  - HYPOAESTHESIA [None]
  - NAUSEA [None]
  - NERVOUSNESS [None]
  - PARAESTHESIA [None]
